FAERS Safety Report 8811857 (Version 4)
Quarter: 2012Q4

REPORT INFORMATION
  Report Type: Report from Study
  Country: FR (occurrence: FR)
  Receive Date: 20120927
  Receipt Date: 20121022
  Transmission Date: 20130627
  Serious: Yes (Life-Threatening, Hospitalization, Other)
  Sender: FDA-Public Use
  Company Number: FR-GLAXOSMITHKLINE-B0833434A

PATIENT
  Age: 67 Year
  Sex: Female
  Weight: 59 kg

DRUGS (13)
  1. PAZOPANIB [Suspect]
     Indication: NEOPLASM
     Dosage: 600MG Per day
     Route: 048
     Dates: start: 20120814
  2. CISPLATIN [Suspect]
     Indication: NEOPLASM
     Dosage: 123.75MG Cyclic
     Route: 042
     Dates: start: 20120822
  3. KYTRIL [Concomitant]
     Indication: PROPHYLAXIS OF NAUSEA AND VOMITING
     Route: 048
     Dates: start: 20120823
  4. IMODIUM [Concomitant]
     Indication: PROPHYLAXIS AGAINST DIARRHOEA
     Route: 048
  5. VOGALENE [Concomitant]
     Indication: NAUSEA
     Route: 048
  6. LOXEN [Concomitant]
     Indication: HYPERTENSION
     Route: 048
  7. XANAX [Concomitant]
     Indication: ANXIETY
     Dates: start: 20120823, end: 20120826
  8. CACIT D3 [Concomitant]
     Indication: OSTEOPOROSIS
     Route: 048
     Dates: start: 201109
  9. FOSAVANCE [Concomitant]
     Indication: OSTEOPOROSIS
     Dosage: 10MG Per day
     Route: 048
     Dates: start: 201207
  10. GAVISCON [Concomitant]
     Dates: start: 200901
  11. FORLAX [Concomitant]
     Indication: CONSTIPATION
     Route: 048
     Dates: start: 20120826
  12. UNKNOWN DRUG [Concomitant]
     Indication: GASTROOESOPHAGEAL REFLUX DISEASE
     Route: 048
     Dates: start: 200901
  13. UNKNOWN DRUG [Concomitant]
     Indication: GASTROOESOPHAGEAL REFLUX DISEASE
     Route: 048
     Dates: start: 200901

REACTIONS (3)
  - Hyponatraemia [Recovered/Resolved]
  - Hepatocellular injury [Recovered/Resolved]
  - Neutropenia [Recovered/Resolved]
